FAERS Safety Report 5143141-6 (Version None)
Quarter: 2006Q4

REPORT INFORMATION
  Report Type: 
  Country: None (occurrence: None)
  Receive Date: 20061030
  Receipt Date: 20061017
  Transmission Date: 20070319
  Serious: Yes (Life-Threatening, Hospitalization)
  Sender: FDA-Public Use
  Company Number: 2006127612

PATIENT
  Age: 8 Year
  Sex: Male
  Weight: 30 kg

DRUGS (8)
  1. CELEBREX [Suspect]
     Dosage: 100 MG (100 MG, 1 IN 1 D), ORAL
     Route: 048
     Dates: start: 20060509
  2. CYCLOPHOSPHAMIDE [Suspect]
     Dosage: 50 MG, INTRAVENOUS
     Route: 042
     Dates: start: 20060509
  3. OMEPRAZOLE [Concomitant]
  4. SOLUPRED (PREDNISOLONE SODIUM SULFOBENZOATE) [Concomitant]
  5. DIHYDANTOIN (PHENYTOIN) [Concomitant]
  6. CARBAMAZEPINE [Concomitant]
  7. CLONAZEPAM [Concomitant]
  8. ETOPOSIDE [Concomitant]

REACTIONS (4)
  - HAEMORRHAGE INTRACRANIAL [None]
  - INTRACRANIAL PRESSURE INCREASED [None]
  - SUBDURAL HAEMATOMA [None]
  - THROMBOCYTOPENIA [None]
